FAERS Safety Report 5671768-1 (Version None)
Quarter: 2008Q2

REPORT INFORMATION
  Report Type: 
  Country: None (occurrence: None)
  Receive Date: 20080227
  Receipt Date: 20070530
  Transmission Date: 20081010
  Serious: Yes (Other)
  Sender: FDA-Public Use
  Company Number: 8-99070-016A

PATIENT

DRUGS (3)
  1. EFFEXOR [Suspect]
     Indication: DEPRESSION
     Dosage: 75 MG 2X PER 1 DAY
  2. INDINAVIR (INDINAVIR, CAPSULE) [Suspect]
     Indication: ACQUIRED IMMUNODEFICIENCY SYNDROME
     Dosage: 2 DOSES
  3. INDINAVIR (INDINAVIR, CAPSULE) [Suspect]
     Indication: HIV INFECTION
     Dosage: 2 DOSES

REACTIONS (1)
  - DRUG INTERACTION [None]
